FAERS Safety Report 15065051 (Version 1)
Quarter: 2018Q2

REPORT INFORMATION
  Report Type: Spontaneous
  Country: US (occurrence: US)
  Receive Date: 20180626
  Receipt Date: 20180626
  Transmission Date: 20180711
  Serious: Yes (Other)
  Sender: FDA-Public Use
  Company Number: US-ROCHE-2144533

PATIENT
  Sex: Female

DRUGS (1)
  1. RITUXAN HYCELA [Suspect]
     Active Substance: HYALURONIDASE (HUMAN RECOMBINANT)\RITUXIMAB
     Indication: NON-HODGKIN^S LYMPHOMA
     Route: 058
     Dates: start: 201712, end: 201801

REACTIONS (3)
  - Asthma [Not Recovered/Not Resolved]
  - Skin cancer [Not Recovered/Not Resolved]
  - Malaise [Not Recovered/Not Resolved]
